FAERS Safety Report 22201712 (Version 1)
Quarter: 2023Q2

REPORT INFORMATION
  Report Type: Spontaneous
  Country: US (occurrence: None)
  Receive Date: 20230411
  Receipt Date: 20230411
  Transmission Date: 20230721
  Serious: No
  Sender: FDA-Public Use
  Company Number: None

PATIENT
  Age: 76 Year
  Sex: Female
  Weight: 69.75 kg

DRUGS (19)
  1. ZOLEDRONIC ACID [Suspect]
     Active Substance: ZOLEDRONIC ACID
     Indication: Osteopenia
     Dosage: OTHER FREQUENCY : ANNUALLY;?
     Route: 042
     Dates: start: 20230406, end: 20230407
  2. DEVICE [Concomitant]
     Active Substance: DEVICE
  3. METHOTREXATE [Concomitant]
     Active Substance: METHOTREXATE
  4. FOLIC ACID [Concomitant]
     Active Substance: FOLIC ACID
  5. LEVOTHYROXINE [Concomitant]
     Active Substance: LEVOTHYROXINE
  6. LISINOPRIL [Concomitant]
     Active Substance: LISINOPRIL
  7. ROSUVASTATIN [Concomitant]
     Active Substance: ROSUVASTATIN
  8. VITAMIN D3 [Concomitant]
     Active Substance: CHOLECALCIFEROL
  9. CALCIUM PHOSPHATE [Concomitant]
     Active Substance: CALCIUM PHOSPHATE
  10. CALCIUM CITRATE [Concomitant]
     Active Substance: CALCIUM CITRATE
  11. MAGNESIUM [Concomitant]
     Active Substance: MAGNESIUM
  12. ZINC [Concomitant]
     Active Substance: ZINC
  13. OMEGA-3 ACIDS [Concomitant]
     Active Substance: OMEGA-3 FATTY ACIDS
  14. Wild Salmon Oi [Concomitant]
  15. LUTEIN [Concomitant]
     Active Substance: LUTEIN
  16. VITAMIN C [Concomitant]
     Active Substance: ASCORBIC ACID
  17. TYLENOL [Concomitant]
     Active Substance: ACETAMINOPHEN
  18. ADVIL [Concomitant]
     Active Substance: IBUPROFEN
  19. Formula 303 (Valerian Root) [Concomitant]

REACTIONS (1)
  - VIth nerve paralysis [None]

NARRATIVE: CASE EVENT DATE: 20230407
